FAERS Safety Report 5191130-8 (Version None)
Quarter: 2006Q4

REPORT INFORMATION
  Report Type: 
  Country: None (occurrence: None)
  Receive Date: 20061226
  Receipt Date: 20061215
  Transmission Date: 20070319
  Serious: Yes (Other)
  Sender: FDA-Public Use
  Company Number: PHBS2006BR19793

PATIENT
  Age: 1 Year
  Sex: Male

DRUGS (3)
  1. TRILEPTAL [Suspect]
     Indication: CONVULSION
     Dosage: 3.5 ML, BID
     Route: 048
     Dates: start: 20061122
  2. TEGRETOL [Concomitant]
     Indication: CONVULSION
     Route: 048
  3. BACTRIM [Concomitant]
     Indication: INFECTION PROPHYLAXIS
     Dosage: 5 ML, QD
     Route: 048
     Dates: start: 20061101

REACTIONS (4)
  - CONVULSION [None]
  - FEELING ABNORMAL [None]
  - PYREXIA [None]
  - RENAL HYPERTROPHY [None]
